FAERS Safety Report 24677685 (Version 1)
Quarter: 2024Q4

REPORT INFORMATION
  Report Type: Spontaneous
  Country: US (occurrence: US)
  Receive Date: 20241129
  Receipt Date: 20241129
  Transmission Date: 20250115
  Serious: No
  Sender: SANOFI AVENTIS
  Company Number: US-SA-2024SA349065

PATIENT
  Sex: Female
  Weight: 84.09 kg

DRUGS (7)
  1. DUPIXENT [Suspect]
     Active Substance: DUPILUMAB
     Indication: Dermatitis atopic
     Dosage: 300 MG, QOW
     Route: 058
  2. FLUCONAZOLE [Concomitant]
     Active Substance: FLUCONAZOLE
  3. VITAMIN D2 [Concomitant]
     Active Substance: ERGOCALCIFEROL
  4. EMGALITY [Concomitant]
     Active Substance: GALCANEZUMAB-GNLM
  5. TACROLIMUS [Concomitant]
     Active Substance: TACROLIMUS
  6. MELOXICAM [Concomitant]
     Active Substance: MELOXICAM
  7. RESTASIS [Concomitant]
     Active Substance: CYCLOSPORINE

REACTIONS (1)
  - Fungal skin infection [Unknown]
